FAERS Safety Report 17855458 (Version 5)
Quarter: 2020Q3

REPORT INFORMATION
  Report Type: Report from Study
  Country: US (occurrence: US)
  Receive Date: 20200603
  Receipt Date: 20200827
  Transmission Date: 20201103
  Serious: Yes (Death, Life-Threatening, Hospitalization, Disabling, Other)
  Sender: FDA-Public Use
  Company Number: US-SA-2020SA121442

PATIENT

DRUGS (9)
  1. SOLU?MEDROL [Concomitant]
     Active Substance: METHYLPREDNISOLONE SODIUM SUCCINATE
     Indication: INFLAMMATION
     Dosage: 40 MG, BID
     Route: 042
     Dates: start: 20200430
  2. PIPERACILLIN TAZOBACTAM PA [Concomitant]
     Active Substance: PIPERACILLIN SODIUM\TAZOBACTAM SODIUM
     Indication: PNEUMONIA
     Dosage: 4.5 G, QID
     Route: 042
     Dates: start: 20200508, end: 20200509
  3. AZITHROMYCIN ANHYDROUS. [Concomitant]
     Active Substance: AZITHROMYCIN ANHYDROUS
     Indication: PNEUMONIA
     Dosage: 500 MG, 1X (SINGLE)
     Route: 042
     Dates: start: 20200430, end: 20200430
  4. CEFTRIAXONE. [Concomitant]
     Active Substance: CEFTRIAXONE
     Indication: PNEUMONIA
     Dosage: 1 G, QD
     Route: 042
     Dates: start: 20200430
  5. EPOPROSTENOL. [Concomitant]
     Active Substance: EPOPROSTENOL
     Indication: PULMONARY HYPERTENSION
     Dosage: 1.5 MG/60 ML, CONTINUOUS
     Route: 055
     Dates: start: 20200501
  6. SARILUMAB [Suspect]
     Active Substance: SARILUMAB
     Indication: COVID-19
     Dosage: 1X; REGN88 OR PLACEBO 200 MG OR 400 MG, SINGLE OR MULTIPLE
     Route: 042
     Dates: start: 20200501, end: 20200501
  7. AZITHROMYCIN ANHYDROUS. [Concomitant]
     Active Substance: AZITHROMYCIN ANHYDROUS
     Dosage: 250 MG, QD
     Route: 042
     Dates: start: 20200501
  8. VANCOMYCIN [Concomitant]
     Active Substance: VANCOMYCIN
     Indication: PNEUMONIA
     Dosage: 1500 MG, BID
     Route: 042
     Dates: start: 20200510
  9. METRONIDAZOLE. [Concomitant]
     Active Substance: METRONIDAZOLE
     Indication: EVIDENCE BASED TREATMENT
     Dosage: 500 MG, TID
     Route: 042
     Dates: start: 20200509, end: 20200511

REACTIONS (14)
  - Intestinal ischaemia [Not Recovered/Not Resolved]
  - Respiratory failure [Not Recovered/Not Resolved]
  - Cardiac arrest [Recovered/Resolved with Sequelae]
  - Thrombosis [Recovered/Resolved]
  - Aspartate aminotransferase increased [Unknown]
  - Haemothorax [Unknown]
  - Cardiac failure [Unknown]
  - Hypotension [Not Recovered/Not Resolved]
  - Septic shock [Fatal]
  - Ventricular tachycardia [Recovered/Resolved]
  - Pneumothorax [Unknown]
  - Fungaemia [Unknown]
  - Enterococcal infection [Not Recovered/Not Resolved]
  - Acute kidney injury [Recovered/Resolved]

NARRATIVE: CASE EVENT DATE: 20200505
